FAERS Safety Report 9490767 (Version 1)
Quarter: 2013Q3

REPORT INFORMATION
  Report Type: Spontaneous
  Country: US (occurrence: None)
  Receive Date: 20130828
  Receipt Date: 20130828
  Transmission Date: 20140515
  Serious: Yes (Life-Threatening, Hospitalization, Disabling, Other)
  Sender: FDA-Public Use
  Company Number: None

PATIENT
  Age: 59 Year
  Sex: Female
  Weight: 48.08 kg

DRUGS (2)
  1. GABAPENTIN [Suspect]
     Indication: NEURALGIA
     Dosage: 100 MG CAPSULES 2 CAP 3X PER DAY
     Dates: start: 201302
  2. GABAPENTIN [Suspect]
     Indication: NECK PAIN
     Dosage: 100 MG CAPSULES 2 CAP 3X PER DAY
     Dates: start: 201302

REACTIONS (5)
  - Vision blurred [None]
  - Mental impairment [None]
  - Gait disturbance [None]
  - Transient ischaemic attack [None]
  - Toxicity to various agents [None]
